FAERS Safety Report 6700452-8 (Version None)
Quarter: 2010Q2

REPORT INFORMATION
  Report Type: 
  Country: None (occurrence: None)
  Receive Date: 20100426
  Receipt Date: 20100304
  Transmission Date: 20101027
  Serious: Yes (Death)
  Sender: FDA-Public Use
  Company Number: 008462

PATIENT
  Age: 47 Year
  Sex: Male

DRUGS (6)
  1. SAMSCA [Suspect]
     Indication: HYPONATRAEMIA
     Dosage: 45 MG, QD, ORAL
     Route: 048
     Dates: start: 20100105, end: 20100128
  2. ESPIRONOLACTONA (SPIRONOLACTONE) [Concomitant]
  3. SILDENAFIL CITRATE [Concomitant]
  4. DIGOXIN [Concomitant]
  5. SEGURIL (FUROSEMIDE) [Concomitant]
  6. ACENOCOUMAROL (ACENOCOUMAROL) [Concomitant]

REACTIONS (6)
  - CARDIAC ARREST [None]
  - CARDIAC FAILURE CONGESTIVE [None]
  - CONDITION AGGRAVATED [None]
  - DRUG INEFFECTIVE [None]
  - NORMOCHROMIC NORMOCYTIC ANAEMIA [None]
  - OFF LABEL USE [None]
